FAERS Safety Report 24342654 (Version 1)
Quarter: 2024Q3

REPORT INFORMATION
  Report Type: Spontaneous
  Country: GR (occurrence: GR)
  Receive Date: 20240920
  Receipt Date: 20240920
  Transmission Date: 20241017
  Serious: Yes (Death, Hospitalization, Other)
  Sender: ACCORD
  Company Number: GR-SANDOZ-SDZ2024GR048271

PATIENT
  Age: 40 Year
  Sex: Female

DRUGS (3)
  1. ENTECAVIR [Suspect]
     Active Substance: ENTECAVIR
     Indication: Hepatitis B reactivation
  2. EVEROLIMUS [Suspect]
     Active Substance: EVEROLIMUS
     Indication: Breast cancer metastatic
     Dosage: UNK
  3. LAMIVUDINE [Suspect]
     Active Substance: LAMIVUDINE
     Indication: Hepatitis B reactivation

REACTIONS (5)
  - Hepatitis B reactivation [Fatal]
  - Hepatic encephalopathy [Fatal]
  - Disease progression [Fatal]
  - Jaundice [Fatal]
  - Thrombocytopenia [Fatal]
